FAERS Safety Report 5457256-6 (Version None)
Quarter: 2007Q3

REPORT INFORMATION
  Report Type: 
  Country: None (occurrence: None)
  Receive Date: 20070918
  Receipt Date: 20070228
  Transmission Date: 20080115
  Serious: Yes (Hospitalization)
  Sender: FDA-Public Use
  Company Number: US-ASTRAZENECA-2007UW02400

PATIENT
  Sex: Female
  Weight: 100 kg

DRUGS (8)
  1. SEROQUEL [Suspect]
     Indication: SCHIZOAFFECTIVE DISORDER
     Dosage: 25-600 MG
     Route: 048
     Dates: start: 20050601
  2. RISPERDAL [Suspect]
     Indication: SCHIZOAFFECTIVE DISORDER
     Dosage: DOSE: 1 MG
  3. ZYPREXA [Suspect]
     Indication: MENTAL DISORDER
     Dosage: DOSE: 5 MG
     Dates: end: 20050201
  4. ABILIFY [Concomitant]
     Dosage: DOSE: 15 MG
     Dates: start: 20051005
  5. TRILAFON [Concomitant]
     Dosage: DOSE UNKNOWN
  6. TRILEPTAL [Concomitant]
     Dosage: DOSE 300 MG
     Dates: start: 20051005, end: 20061021
  7. DEPAKOTE [Concomitant]
     Dosage: DOSE UNKNOWN
     Dates: start: 20050215, end: 20050907
  8. MELLARIL [Concomitant]
     Dates: start: 20050301, end: 20050601

REACTIONS (4)
  - GALACTORRHOEA [None]
  - HYPERLIPIDAEMIA [None]
  - TYPE 1 DIABETES MELLITUS [None]
  - WEIGHT INCREASED [None]
